FAERS Safety Report 11012623 (Version 1)
Quarter: 2015Q2

REPORT INFORMATION
  Report Type: Spontaneous
  Country: US (occurrence: None)
  Receive Date: 20150410
  Receipt Date: 20150410
  Transmission Date: 20150821
  Serious: No
  Sender: FDA-Public Use
  Company Number: None

PATIENT
  Age: 26 Year
  Sex: Female
  Weight: 49.9 kg

DRUGS (5)
  1. NUVARING [Concomitant]
     Active Substance: ETHINYL ESTRADIOL\ETONOGESTREL
  2. ADVIL [Concomitant]
     Active Substance: IBUPROFEN
  3. NUVARING [Suspect]
     Active Substance: ETHINYL ESTRADIOL\ETONOGESTREL
  4. ALIEVE [Concomitant]
  5. MIDOL [Concomitant]
     Active Substance: IBUPROFEN

REACTIONS (7)
  - Dizziness [None]
  - Depression [None]
  - Discomfort [None]
  - Photophobia [None]
  - Mood swings [None]
  - Headache [None]
  - Anxiety [None]
